FAERS Safety Report 21314727 (Version 3)
Quarter: 2023Q2

REPORT INFORMATION
  Report Type: Report from Study
  Country: US (occurrence: US)
  Receive Date: 20220909
  Receipt Date: 20230426
  Transmission Date: 20230722
  Serious: Yes (Other)
  Sender: FDA-Public Use
  Company Number: US-UCBSA-2022053107

PATIENT
  Sex: Female
  Weight: 149 kg

DRUGS (1)
  1. CERTOLIZUMAB PEGOL [Suspect]
     Active Substance: CERTOLIZUMAB PEGOL
     Indication: Rheumatoid arthritis
     Dosage: 400 MILLIGRAM, EV 4 WEEKS
     Route: 058
     Dates: start: 20220727, end: 20230201

REACTIONS (6)
  - Pruritus [Recovered/Resolved]
  - Rash pruritic [Recovered/Resolved]
  - Pain [Recovering/Resolving]
  - Headache [Recovering/Resolving]
  - Pain of skin [Recovering/Resolving]
  - Red blood cell sedimentation rate increased [Recovering/Resolving]

NARRATIVE: CASE EVENT DATE: 20220101
